FAERS Safety Report 21997322 (Version 1)
Quarter: 2023Q1

REPORT INFORMATION
  Report Type: Spontaneous
  Country: US (occurrence: US)
  Receive Date: 20230216
  Receipt Date: 20230216
  Transmission Date: 20230418
  Serious: No
  Sender: FDA-Public Use
  Company Number: US-drreddys-SPO/USA/23/0159481

PATIENT
  Age: 19 Year

DRUGS (2)
  1. ZENATANE [Suspect]
     Active Substance: ISOTRETINOIN
     Indication: Acne
     Dosage: RMA ISSUE DATE 14 JUNE 2022 09:34:26 AM, 15 JUNE 2022 03:26:27 PM, 24 AUGUST 2022 07:24:36 AM, 08:09
  2. ZENATANE [Suspect]
     Active Substance: ISOTRETINOIN
     Dosage: RMA ISSUE DATE 01 NOVEMBER 2022 01:08:07 PM

REACTIONS (1)
  - Treatment noncompliance [Unknown]
